FAERS Safety Report 24232107 (Version 1)
Quarter: 2024Q3

REPORT INFORMATION
  Report Type: Spontaneous
  Country: CN (occurrence: CN)
  Receive Date: 20240821
  Receipt Date: 20240821
  Transmission Date: 20241016
  Serious: Yes (Other)
  Sender: GRIFOLS
  Company Number: CN-IGSA-BIG0029909

PATIENT
  Age: 73 Year
  Sex: Female
  Weight: 65 kg

DRUGS (2)
  1. PLASBUMIN-20 [Suspect]
     Active Substance: ALBUMIN HUMAN
     Indication: Fatigue
     Dosage: 10 GRAM, SINGLE
     Route: 042
     Dates: start: 20240716, end: 20240716
  2. PLASBUMIN-20 [Suspect]
     Active Substance: ALBUMIN HUMAN
     Indication: Protein total decreased

REACTIONS (10)
  - Shock [Recovering/Resolving]
  - Dizziness [Recovering/Resolving]
  - Chest discomfort [Recovering/Resolving]
  - Palpitations [Recovering/Resolving]
  - Nausea [Recovering/Resolving]
  - Vomiting [Recovering/Resolving]
  - Hyperhidrosis [Recovering/Resolving]
  - Pallor [Recovering/Resolving]
  - Sinus bradycardia [Recovering/Resolving]
  - Myocardial ischaemia [Recovering/Resolving]

NARRATIVE: CASE EVENT DATE: 20240716
